FAERS Safety Report 8628130 (Version 2)
Quarter: 2012Q4

REPORT INFORMATION
  Report Type: 
  Country: IE (occurrence: IE)
  Receive Date: 20120621
  Receipt Date: 20120919
  Transmission Date: 20130627
  Serious: Yes (Death, Other)
  Sender: FDA-Public Use
  Company Number: IE-TEVA-337701ISR

PATIENT
  Age: 87 Year
  Sex: Female

DRUGS (11)
  1. ACTIQ [Suspect]
     Indication: BREAKTHROUGH PAIN
     Route: 048
  2. TEVA DIAGLYC [Concomitant]
     Indication: DIABETES MELLITUS
     Dosage: 90 Milligram Daily;
     Route: 048
     Dates: start: 20111202, end: 20120507
  3. LANOXIN PG [Concomitant]
     Indication: ATRIAL FIBRILLATION
     Dosage: 62.5 Milligram Daily;
     Route: 048
     Dates: start: 20111202, end: 20120507
  4. LIPITOR [Concomitant]
     Indication: HYPERCHOLESTEROLAEMIA
     Dosage: 20 Milligram Daily;
     Route: 048
     Dates: start: 20111202, end: 20120507
  5. LYRICA [Concomitant]
     Indication: NEURALGIA
     Dosage: 100 Milligram Daily;
     Route: 048
     Dates: start: 20111202, end: 20120507
  6. AMITRIPTYLINE (BRAND NAME NOT SPECIFIED) [Concomitant]
     Indication: NEURALGIA
     Dosage: 25 Milligram Daily; Frequency: nocte
     Route: 048
     Dates: start: 20111202, end: 20120507
  7. HALICON [Concomitant]
     Indication: INSOMNIA
     Dosage: .125 Milligram Daily; Frequency: nocte
     Route: 048
     Dates: start: 20111202, end: 20120507
  8. PARALIEF [Concomitant]
     Indication: ANALGESIC THERAPY
     Dosage: Unit dose: 0.5-1g, dosage frequency: 4g max (prn).
     Route: 048
     Dates: start: 20111202, end: 20120507
  9. TARGIN (OXYCODONE HYDROCHLORIDE, NALOXONE HYDROCHLORIDE DIHYDRATE) [Concomitant]
     Indication: ANALGESIC INTERVENTION SUPPORTIVE THERAPY
     Dosage: Unit dose: 5 mg/2.5 mg; Daily dose: 5 mg/2.5 mg
     Route: 048
     Dates: start: 20120421, end: 20120507
  10. TARGIN (OXYCODONE HYDROCHLORIDE, NALOXONE HYDROCHLORIDE DIHYDRATE) [Concomitant]
     Indication: ANALGESIC THERAPY
  11. TEVA WARFARIN [Concomitant]
     Indication: THROMBOSIS PROPHYLAXIS
     Dosage: Frequence: as per INR
     Route: 048
     Dates: start: 20111202, end: 20120507

REACTIONS (3)
  - Death [Fatal]
  - Drug prescribing error [Unknown]
  - Off label use [Unknown]
